FAERS Safety Report 5088103-2 (Version None)
Quarter: 2006Q3

REPORT INFORMATION
  Report Type: 
  Country: None (occurrence: None)
  Receive Date: 20060821
  Receipt Date: 20060808
  Transmission Date: 20061208
  Serious: Yes (Hospitalization, Other)
  Sender: FDA-Public Use
  Company Number: 2006096975

PATIENT
  Age: 63 Year
  Sex: Female
  Weight: 61.2356 kg

DRUGS (3)
  1. NEURONTIN [Suspect]
     Indication: PAIN
     Dosage: 1200 MG (400 MG, 3 IN 1 D)
  2. LYRICA [Suspect]
     Indication: PAIN
     Dates: start: 20060710, end: 20060701
  3. ALL OTHER THERAPEUTIC PRODUCTS (ALL OTHER THERAPEUTIC PRODUCTS) [Concomitant]

REACTIONS (16)
  - APHASIA [None]
  - BACTERAEMIA [None]
  - CONFUSIONAL STATE [None]
  - DRUG INEFFECTIVE [None]
  - DRUG PRESCRIBING ERROR [None]
  - GAIT DISTURBANCE [None]
  - HYPERSOMNIA [None]
  - INCORRECT DOSE ADMINISTERED [None]
  - JOINT SWELLING [None]
  - MALAISE [None]
  - MEDICATION ERROR [None]
  - PNEUMONIA [None]
  - SEPSIS [None]
  - SOMNOLENCE [None]
  - SPEECH DISORDER [None]
  - STAPHYLOCOCCAL INFECTION [None]
